FAERS Safety Report 23637805 (Version 1)
Quarter: 2024Q1

REPORT INFORMATION
  Report Type: Report from Study
  Country: US (occurrence: US)
  Receive Date: 20240315
  Receipt Date: 20240315
  Transmission Date: 20240410
  Serious: Yes (Hospitalization)
  Sender: FDA-Public Use
  Company Number: US-ABBVIE-5648879

PATIENT
  Age: 62 Year
  Sex: Female
  Weight: 91.171 kg

DRUGS (3)
  1. HUMIRA [Suspect]
     Active Substance: ADALIMUMAB
     Indication: Product used for unknown indication
     Dosage: CITRATE FREE, FORM STRENGTH: 40 MILLIGRAM
     Route: 058
     Dates: start: 20230905
  2. OZEMPIC [Concomitant]
     Active Substance: SEMAGLUTIDE
     Indication: Diabetes mellitus
     Route: 065
     Dates: start: 20240130
  3. TRULICITY [Concomitant]
     Active Substance: DULAGLUTIDE
     Indication: Diabetes mellitus

REACTIONS (4)
  - Weight increased [Not Recovered/Not Resolved]
  - Cellulitis [Recovered/Resolved with Sequelae]
  - Skin fissures [Unknown]
  - Scab [Not Recovered/Not Resolved]

NARRATIVE: CASE EVENT DATE: 20231201
